APPROVED DRUG PRODUCT: DEXAMETHASONE SODIUM PHOSPHATE PRESERVATIVE FREE
Active Ingredient: DEXAMETHASONE SODIUM PHOSPHATE
Strength: EQ 10MG PHOSPHATE/ML
Dosage Form/Route: INJECTABLE;INJECTION
Application: A040491 | Product #001 | TE Code: AP
Applicant: FRESENIUS KABI USA LLC
Approved: Apr 11, 2003 | RLD: No | RS: Yes | Type: RX